FAERS Safety Report 8568372-4 (Version None)
Quarter: 2012Q3

REPORT INFORMATION
  Report Type: 
  Country: None (occurrence: None)
  Receive Date: 20120803
  Receipt Date: 20120109
  Transmission Date: 20120928
  Serious: No
  Sender: FDA-Public Use
  Company Number: US-ABBOTT-12P-163-0891346-00

PATIENT
  Sex: Male
  Weight: 104.42 kg

DRUGS (4)
  1. BLOOD PRESSURE MEDICINE [Concomitant]
     Indication: PRODUCT USED FOR UNKNOWN INDICATION
  2. PRILOSEC [Concomitant]
     Indication: PRODUCT USED FOR UNKNOWN INDICATION
  3. FISH OIL [Concomitant]
     Indication: PRODUCT USED FOR UNKNOWN INDICATION
  4. NIASPAN [Suspect]
     Indication: HIGH DENSITY LIPOPROTEIN DECREASED
     Dosage: DAILY
     Dates: start: 20111201, end: 20111201

REACTIONS (3)
  - FEELING ABNORMAL [None]
  - PARAESTHESIA [None]
  - FEELING HOT [None]
